FAERS Safety Report 7981464-3 (Version None)
Quarter: 2011Q4

REPORT INFORMATION
  Report Type: 
  Country: None (occurrence: None)
  Receive Date: 20111215
  Receipt Date: 20111212
  Transmission Date: 20120403
  Serious: Yes (Other)
  Sender: FDA-Public Use
  Company Number: US-PFIZER INC-2009150376

PATIENT
  Sex: Male
  Weight: 66.667 kg

DRUGS (6)
  1. ASPIRIN [Concomitant]
     Dosage: UNK
  2. PROSCAR [Concomitant]
     Dosage: UNK
  3. ACTOS [Concomitant]
     Dosage: UNK
  4. METFORMIN HYDROCHLORIDE [Concomitant]
     Dosage: UNK
  5. LIPITOR [Suspect]
     Indication: BLOOD CHOLESTEROL INCREASED
     Dosage: 10 MG, 1X/DAY
  6. PLAVIX [Concomitant]
     Dosage: UNK

REACTIONS (2)
  - CARDIAC DISORDER [None]
  - AMNESIA [None]
